FAERS Safety Report 8460394-7 (Version None)
Quarter: 2012Q2

REPORT INFORMATION
  Report Type: 
  Country: None (occurrence: None)
  Receive Date: 20120323
  Receipt Date: 20111117
  Transmission Date: 20120825
  Serious: Yes (Other)
  Sender: FDA-Public Use
  Company Number: 163-21880-11091600

PATIENT
  Age: 61 Year
  Sex: Male
  Weight: 79.3795 kg

DRUGS (15)
  1. COUMADIN [Concomitant]
  2. REVLIMID [Suspect]
     Indication: MULTIPLE MYELOMA
     Dosage: 25 MG, 1 IN 1 D, PO ; 10 MG, 1 IN 1 D, PO ; 5 MG, 1 IN 1 D, PO
     Route: 048
     Dates: start: 20110901
  3. REVLIMID [Suspect]
     Indication: MULTIPLE MYELOMA
     Dosage: 25 MG, 1 IN 1 D, PO ; 10 MG, 1 IN 1 D, PO ; 5 MG, 1 IN 1 D, PO
     Route: 048
     Dates: start: 20100901
  4. REVLIMID [Suspect]
     Indication: MULTIPLE MYELOMA
     Dosage: 25 MG, 1 IN 1 D, PO ; 10 MG, 1 IN 1 D, PO ; 5 MG, 1 IN 1 D, PO
     Route: 048
     Dates: start: 20110601
  5. PENTANIDENE [Concomitant]
  6. ATIVAN [Concomitant]
  7. WARFARIN SODIUM [Concomitant]
  8. HYDROCORTISONE ACETATE (HYDROCORTISONE ACETATE) [Concomitant]
  9. GABAPENTIN [Concomitant]
  10. OXYCODONE HCL [Concomitant]
  11. BACTRIM [Concomitant]
  12. NITROGLYCERIN [Concomitant]
  13. PENTAMIDINE (PENTAMIDINE) [Concomitant]
  14. ZOMETA [Concomitant]
  15. CALCIUM CARBONATE [Concomitant]

REACTIONS (1)
  - PANCYTOPENIA [None]
